FAERS Safety Report 10357106 (Version 1)
Quarter: 2014Q3

REPORT INFORMATION
  Report Type: Spontaneous
  Country: NL (occurrence: NL)
  Receive Date: 20140801
  Receipt Date: 20140801
  Transmission Date: 20150326
  Serious: Yes (Other)
  Sender: FDA-Public Use
  Company Number: NL-PFIZER INC-2014210186

PATIENT
  Age: 18 Year
  Sex: Female
  Weight: 54 kg

DRUGS (13)
  1. AMOXICILLIN TRIHYDRATE [Concomitant]
     Active Substance: AMOXICILLIN
     Dosage: 500 MG, 3X/DAY
     Dates: start: 20140414
  2. IPRATROPIUM BROMIDE. [Concomitant]
     Active Substance: IPRATROPIUM BROMIDE
     Dosage: 1.5 ML, 4X/DAY
  3. FLIXOTIDE OSP [Concomitant]
     Dosage: 1 ML, 4X/DAY
  4. SALBUTAMOL SULFATE [Concomitant]
     Active Substance: ALBUTEROL SULFATE
     Dosage: 0.5 ML, 4X/DAY
  5. FORLAX [Concomitant]
     Active Substance: POLYETHYLENE GLYCOL 4000
     Dosage: 10 MG, 2X/DAY
  6. BACLOFEN ACTAVIS [Concomitant]
     Dosage: 10 MG, 4X/DAY
  7. NEXIUM [Concomitant]
     Active Substance: ESOMEPRAZOLE MAGNESIUM
     Dosage: 20 MG, 3X/DAY
  8. CLONAZEPAM. [Concomitant]
     Active Substance: CLONAZEPAM
     Dosage: 0.5 MG, 4X/DAY
  9. DEPAKINE [Concomitant]
     Active Substance: VALPROATE SODIUM
     Dosage: 11.25 ML, 2X/DAY
  10. DEPO-PROVERA [Suspect]
     Active Substance: MEDROXYPROGESTERONE ACETATE
     Indication: MENSTRUATION IRREGULAR
     Dosage: 1 DF, EVERY 11 WEEKS
     Dates: start: 2011
  11. MICONAZOLNITRAAT/HYDROCORTISON CF [Concomitant]
     Dosage: 1 DF, 1X/DAY
  12. COLECALCIFEROL [Concomitant]
     Active Substance: CHOLECALCIFEROL
     Dosage: 2 ML, EVERY 3 MONTHS
  13. MICROLAX [Concomitant]
     Dosage: 5 ML, AS NEEDED

REACTIONS (1)
  - Epilepsy [Recovered/Resolved]

NARRATIVE: CASE EVENT DATE: 20131106
